FAERS Safety Report 11406351 (Version 2)
Quarter: 2015Q4

REPORT INFORMATION
  Report Type: Spontaneous
  Country: US (occurrence: US)
  Receive Date: 20150821
  Receipt Date: 20151028
  Transmission Date: 20160304
  Serious: Yes (Other)
  Sender: FDA-Public Use
  Company Number: US-AMGEN-USASP2015085315

PATIENT
  Age: 18 Year
  Sex: Female
  Weight: 76.19 kg

DRUGS (1)
  1. PROCRIT [Suspect]
     Active Substance: ERYTHROPOIETIN
     Indication: FULL BLOOD COUNT DECREASED
     Dosage: UNK
     Route: 058
     Dates: start: 200702, end: 200702

REACTIONS (2)
  - Drug effect delayed [Unknown]
  - Abortion spontaneous [Recovered/Resolved]

NARRATIVE: CASE EVENT DATE: 200702
